FAERS Safety Report 9983124 (Version 1)
Quarter: 2014Q1

REPORT INFORMATION
  Report Type: Report from Study
  Country: US (occurrence: US)
  Receive Date: 20140307
  Receipt Date: 20140307
  Transmission Date: 20141002
  Serious: No
  Sender: FDA-Public Use
  Company Number: US-ABBVIE-13P-163-1177109-00

PATIENT
  Age: 62 Year
  Sex: Female

DRUGS (24)
  1. HUMIRA [Suspect]
     Indication: CROHN^S DISEASE
     Dates: start: 20131128, end: 20131128
  2. HUMIRA [Suspect]
  3. URISED [Concomitant]
     Indication: PRODUCT USED FOR UNKNOWN INDICATION
  4. FURSOSEMIDE [Concomitant]
     Indication: PRODUCT USED FOR UNKNOWN INDICATION
  5. ALPRAZOLAM [Concomitant]
     Indication: PRODUCT USED FOR UNKNOWN INDICATION
  6. FLUOXETINE [Concomitant]
     Indication: PRODUCT USED FOR UNKNOWN INDICATION
  7. PREMARIN [Concomitant]
     Indication: PRODUCT USED FOR UNKNOWN INDICATION
  8. BONIVA [Concomitant]
     Indication: PRODUCT USED FOR UNKNOWN INDICATION
     Dosage: MONTHLY
  9. KLOR-CON [Concomitant]
     Indication: PRODUCT USED FOR UNKNOWN INDICATION
  10. DITROPAN [Concomitant]
     Indication: PRODUCT USED FOR UNKNOWN INDICATION
  11. NASAL SPRAY [Concomitant]
     Indication: PRODUCT USED FOR UNKNOWN INDICATION
  12. ALLOPURINOL [Concomitant]
     Indication: GOUT
  13. COLCHICINE [Concomitant]
     Indication: GOUT
  14. LEVOTHYROXINE [Concomitant]
     Indication: PRODUCT USED FOR UNKNOWN INDICATION
  15. CO-Q10 VITAMIN [Concomitant]
     Indication: PRODUCT USED FOR UNKNOWN INDICATION
  16. B-COMPLEX VITAMIN [Concomitant]
     Indication: PRODUCT USED FOR UNKNOWN INDICATION
  17. IRON [Concomitant]
     Indication: PRODUCT USED FOR UNKNOWN INDICATION
  18. ELIDEL [Concomitant]
     Indication: EYE DISORDER
  19. CLOBETAZOL [Concomitant]
     Indication: PSORIASIS
  20. NYSTATIN [Concomitant]
     Indication: PSORIASIS
  21. DESINOIDE [Concomitant]
     Indication: PSORIASIS
  22. ZOFRAN [Concomitant]
     Indication: NAUSEA
  23. PREDNISONE [Concomitant]
     Indication: PRODUCT USED FOR UNKNOWN INDICATION
     Dosage: TAPERING DOSE
  24. DIARRHEA MEDICATION [Concomitant]
     Indication: PRODUCT USED FOR UNKNOWN INDICATION
     Dosage: UP TO 5 TABLETS A DAY

REACTIONS (2)
  - Injection site pain [Recovering/Resolving]
  - Nausea [Recovering/Resolving]
